FAERS Safety Report 21878712 (Version 2)
Quarter: 2023Q2

REPORT INFORMATION
  Report Type: Report from Study
  Country: BR (occurrence: BR)
  Receive Date: 20230118
  Receipt Date: 20230511
  Transmission Date: 20230722
  Serious: Yes (Other)
  Sender: FDA-Public Use
  Company Number: BR-JNJFOC-20230125854

PATIENT
  Age: 72 Year
  Sex: Female

DRUGS (4)
  1. SIMPONI [Suspect]
     Active Substance: GOLIMUMAB
     Indication: Rheumatoid arthritis
     Dosage: 30 IN 30 DAYS
     Route: 058
     Dates: start: 20211020
  2. SIMPONI [Suspect]
     Active Substance: GOLIMUMAB
     Route: 058
  3. METHOTREXATE [Concomitant]
     Active Substance: METHOTREXATE
  4. VITAMIN B COMPLEX [CYANOCOBALAMIN] [Concomitant]

REACTIONS (8)
  - Arrhythmia [Unknown]
  - Rheumatoid arthritis [Unknown]
  - COVID-19 [Unknown]
  - Hypertension [Unknown]
  - Fear of injection [Unknown]
  - Memory impairment [Unknown]
  - Dizziness [Unknown]
  - Off label use [Unknown]

NARRATIVE: CASE EVENT DATE: 20221218
